FAERS Safety Report 12420178 (Version 5)
Quarter: 2016Q2

REPORT INFORMATION
  Report Type: Report from Study
  Country: US (occurrence: US)
  Receive Date: 20160531
  Receipt Date: 20160620
  Transmission Date: 20160815
  Serious: Yes (Hospitalization, Other)
  Sender: FDA-Public Use
  Company Number: US-GILEAD-2016-0216171

PATIENT
  Age: 74 Year
  Sex: Female

DRUGS (1)
  1. AMBRISENTAN [Suspect]
     Active Substance: AMBRISENTAN
     Indication: PULMONARY ARTERY DILATATION
     Dosage: 5 MG, QD
     Route: 065
     Dates: start: 20120305

REACTIONS (17)
  - Pain [Unknown]
  - Coronary artery occlusion [Unknown]
  - Pulmonary arterial hypertension [Unknown]
  - Nerve injury [Unknown]
  - Sinus disorder [Unknown]
  - Coronary artery disease [Unknown]
  - Pulmonary artery dilatation [Unknown]
  - Catheterisation cardiac [Unknown]
  - Pulmonary fibrosis [Unknown]
  - Productive cough [Unknown]
  - Emphysema [Unknown]
  - Sputum discoloured [Unknown]
  - Malaise [Unknown]
  - Road traffic accident [Unknown]
  - Off label use [Not Recovered/Not Resolved]
  - Joint swelling [Unknown]
  - Arthritis [Unknown]

NARRATIVE: CASE EVENT DATE: 20120305
